FAERS Safety Report 20156945 (Version 3)
Quarter: 2022Q1

REPORT INFORMATION
  Report Type: Spontaneous
  Country: US (occurrence: US)
  Receive Date: 20211207
  Receipt Date: 20220204
  Transmission Date: 20220423
  Serious: Yes (Life-Threatening, Disabling, Other)
  Sender: FDA-Public Use
  Company Number: US-PFIZER INC-202101655733

PATIENT
  Age: 73 Year
  Sex: Female

DRUGS (2)
  1. XELJANZ [Suspect]
     Active Substance: TOFACITINIB CITRATE
     Dosage: 5 MG, 2X/DAY (5MG ORAL TWICE A DAY)
     Route: 048
     Dates: start: 201801
  2. XELJANZ [Suspect]
     Active Substance: TOFACITINIB CITRATE
     Dosage: 5 MG, 1X/DAY (TO TAKE ONE XELJANZ TABLET A DAY INSTEAD OF TWICE A DAY)

REACTIONS (6)
  - Myocardial infarction [Recovered/Resolved]
  - Single functional kidney [Not Recovered/Not Resolved]
  - Rheumatoid arthritis [Unknown]
  - Laboratory test abnormal [Not Recovered/Not Resolved]
  - Skin disorder [Recovering/Resolving]
  - Liver disorder [Unknown]

NARRATIVE: CASE EVENT DATE: 20190101
